FAERS Safety Report 18416201 (Version 8)
Quarter: 2020Q4

REPORT INFORMATION
  Report Type: Spontaneous
  Country: IT (occurrence: IT)
  Receive Date: 20201022
  Receipt Date: 20201130
  Transmission Date: 20210114
  Serious: Yes (Hospitalization, Other)
  Sender: FDA-Public Use
  Company Number: IT-MYLANLABS-2020M1086210

PATIENT
  Age: 7 Year
  Sex: Female

DRUGS (9)
  1. IBUPROFEN. [Suspect]
     Active Substance: IBUPROFEN
     Indication: RASH VESICULAR
     Dosage: UNK
     Route: 048
  2. AMOXICILLIN CLAVULANIC ACID [Suspect]
     Active Substance: AMOXICILLIN\CLAVULANIC ACID
     Indication: PYREXIA
  3. AMOXICILLIN CLAVULANIC ACID [Suspect]
     Active Substance: AMOXICILLIN\CLAVULANIC ACID
     Indication: RASH VESICULAR
     Dosage: UNK
     Route: 048
  4. IBUPROFEN. [Suspect]
     Active Substance: IBUPROFEN
     Indication: PYREXIA
  5. IBUPROFEN. [Suspect]
     Active Substance: IBUPROFEN
     Indication: STOMATITIS
     Dosage: UNK
     Route: 065
  6. IBUPROFEN. [Suspect]
     Active Substance: IBUPROFEN
     Indication: NIKOLSKY^S SIGN
  7. AMOXICILLIN CLAVULANIC ACID [Suspect]
     Active Substance: AMOXICILLIN\CLAVULANIC ACID
     Indication: STOMATITIS
     Dosage: UNK
     Route: 065
  8. AMOXICILLIN CLAVULANIC ACID [Suspect]
     Active Substance: AMOXICILLIN\CLAVULANIC ACID
     Indication: NIKOLSKY^S SIGN
  9. AMOXICILLIN CLAVULANIC ACID [Suspect]
     Active Substance: AMOXICILLIN\CLAVULANIC ACID
     Indication: MUCOSAL INFLAMMATION

REACTIONS (10)
  - Nikolsky^s sign [Recovered/Resolved]
  - Rash vesicular [Recovered/Resolved]
  - Drug ineffective [Unknown]
  - Condition aggravated [Recovered/Resolved]
  - Mucosal inflammation [Recovered/Resolved]
  - Rash [Recovered/Resolved]
  - Toxic epidermal necrolysis [Recovered/Resolved]
  - Pyrexia [Recovered/Resolved]
  - Stomatitis [Recovered/Resolved]
  - Product use issue [Unknown]
